FAERS Safety Report 16795716 (Version 1)
Quarter: 2019Q3

REPORT INFORMATION
  Report Type: Spontaneous
  Country: GB (occurrence: GB)
  Receive Date: 20190911
  Receipt Date: 20190911
  Transmission Date: 20191005
  Serious: Yes (Other)
  Sender: FDA-Public Use
  Company Number: GB-ASTRAZENECA-2019SF25390

PATIENT
  Age: 79 Year
  Weight: 149 kg

DRUGS (8)
  1. ATORVASTATIN [Concomitant]
     Active Substance: ATORVASTATIN
     Dosage: 20.0MG UNKNOWN
  2. MOMETASONE [Concomitant]
     Active Substance: MOMETASONE
     Dosage: 50.0UG/INHAL UNKNOWN
  3. TAMSULOSIN [Concomitant]
     Active Substance: TAMSULOSIN
     Dosage: 400.0UG/INHAL UNKNOWN
  4. ZEAXANTHIN [Concomitant]
     Active Substance: ZEAXANTHIN
  5. LUTEIN [Concomitant]
     Active Substance: LUTEIN
  6. OMEPRAZOLE. [Suspect]
     Active Substance: OMEPRAZOLE
     Route: 048
     Dates: start: 20190719, end: 20190810
  7. FINASTERIDE. [Concomitant]
     Active Substance: FINASTERIDE
     Dosage: 5.0MG UNKNOWN
  8. SALBUTAMOL [Concomitant]
     Active Substance: ALBUTEROL
     Dosage: 100.0UG/INHAL UNKNOWN

REACTIONS (3)
  - Fatigue [Recovered/Resolved]
  - Balance disorder [Recovered/Resolved]
  - Flatulence [Recovered/Resolved]

NARRATIVE: CASE EVENT DATE: 20190719
